FAERS Safety Report 19214429 (Version 1)
Quarter: 2021Q2

REPORT INFORMATION
  Report Type: Other
  Country: ES (occurrence: ES)
  Receive Date: 20210505
  Receipt Date: 20210505
  Transmission Date: 20210717
  Serious: Yes (Hospitalization, Other)
  Sender: FDA-Public Use
  Company Number: ES-GLENMARK PHARMACEUTICALS-2021GMK053841

PATIENT

DRUGS (3)
  1. GABAPENTIN. [Suspect]
     Active Substance: GABAPENTIN
     Indication: BACK PAIN
     Dosage: 300 MILLIGRAM, TID
     Route: 048
     Dates: start: 20210328
  2. ZALDIAR [Interacting]
     Active Substance: ACETAMINOPHEN\TRAMADOL HYDROCHLORIDE
     Indication: BACK PAIN
     Dosage: 1 DOSAGE FORM, TID
     Route: 048
     Dates: start: 20210328
  3. RIVOTRIL [Interacting]
     Active Substance: CLONAZEPAM
     Indication: BACK PAIN
     Dosage: 11 GTT DROPS, QD
     Route: 048
     Dates: start: 20210328, end: 20210331

REACTIONS (3)
  - Headache [Recovered/Resolved]
  - Aphasia [Recovered/Resolved]
  - Syncope [Recovered/Resolved]

NARRATIVE: CASE EVENT DATE: 20210331
